FAERS Safety Report 8024473-0 (Version None)
Quarter: 2011Q4

REPORT INFORMATION
  Report Type: 
  Country: None (occurrence: None)
  Receive Date: 20111130
  Receipt Date: 20110707
  Transmission Date: 20120403
  Serious: Yes (Other)
  Sender: FDA-Public Use
  Company Number: 331428

PATIENT
  Age: 71 Year
  Sex: Male
  Weight: 82.5 kg

DRUGS (2)
  1. NOVOLOG [Suspect]
     Indication: TYPE 2 DIABETES MELLITUS
     Dosage: SUBCUTANEOUS
     Route: 058
     Dates: start: 20090801
  2. LEVEMIR [Suspect]
     Indication: TYPE 2 DIABETES MELLITUS
     Dosage: 50 LU, QD, SUBCUTANEOUS
     Route: 058
     Dates: start: 20090801

REACTIONS (1)
  - WRONG DRUG ADMINISTERED [None]
